FAERS Safety Report 8557596-8 (Version None)
Quarter: 2012Q3

REPORT INFORMATION
  Report Type: 
  Country: None (occurrence: None)
  Receive Date: 20120801
  Receipt Date: 20120720
  Transmission Date: 20120928
  Serious: Yes (Other)
  Sender: FDA-Public Use
  Company Number: US-PFIZER INC-2012034589

PATIENT
  Sex: Male
  Weight: 87.982 kg

DRUGS (14)
  1. VIAGRA [Suspect]
     Dosage: ONE AND HALF TABLET (75 MG), UNK
     Route: 048
     Dates: start: 20120206
  2. VIAGRA [Suspect]
     Dosage: 50 MG, AS NEEDED
     Route: 048
  3. OMEPRAZOLE [Concomitant]
     Indication: DYSPEPSIA
     Dosage: 20 MG, 1X/DAY
     Dates: start: 20120101
  4. PANTOPRAZOLE [Concomitant]
     Dosage: UNK
  5. ETODOLAC [Concomitant]
     Dosage: UNK
  6. VIAGRA [Suspect]
     Indication: ERECTILE DYSFUNCTION
     Dosage: UNK
     Route: 048
     Dates: start: 19980101
  7. MELATONIN [Concomitant]
     Indication: SLEEP APNOEA SYNDROME
     Dosage: 3 MG, 2X/DAY
  8. VIAGRA [Suspect]
     Indication: PERIPHERAL VASCULAR DISORDER
     Dosage: 50 MG, AS NEEDED
     Route: 048
     Dates: start: 20120206
  9. PREDNISONE [Concomitant]
     Indication: ARTHRITIS
  10. FISH OIL [Concomitant]
     Indication: ROUTINE HEALTH MAINTENANCE
     Dosage: 1000 MG, 1X/DAY
  11. PREDNISONE [Concomitant]
     Indication: BURSITIS
     Dosage: 20 MG, 1X/DAY
  12. PREDNISONE [Concomitant]
     Indication: TENDONITIS
  13. TAMSULOSIN [Concomitant]
     Dosage: UNK
  14. CALCIUM CARBONATE [Concomitant]
     Dosage: UNK

REACTIONS (4)
  - SENSATION OF BLOOD FLOW [None]
  - THERAPEUTIC RESPONSE UNEXPECTED [None]
  - NAUSEA [None]
  - PROSTATOMEGALY [None]
